FAERS Safety Report 24287052 (Version 1)
Quarter: 2024Q3

REPORT INFORMATION
  Report Type: Spontaneous
  Country: CN (occurrence: CN)
  Receive Date: 20240905
  Receipt Date: 20240905
  Transmission Date: 20241017
  Serious: Yes (Hospitalization, Other)
  Sender: SANOFI AVENTIS
  Company Number: CN-SA-2024SA253480

PATIENT
  Age: 72 Year
  Sex: Male
  Weight: 64 kg

DRUGS (5)
  1. OXALIPLATIN [Suspect]
     Active Substance: OXALIPLATIN
     Indication: Hepatic cancer
     Dosage: 100 MG, 1X (HEPATIC ARTERY PERFUSION)
     Dates: start: 20240816, end: 20240816
  2. EPIRUBICIN HYDROCHLORIDE [Suspect]
     Active Substance: EPIRUBICIN HYDROCHLORIDE
     Indication: Hepatic cancer
     Dosage: 40 MG, 1X (HEPATIC ARTERY PERFUSION)
     Dates: start: 20240816, end: 20240816
  3. IODINE [Concomitant]
     Active Substance: IODINE
     Indication: Hepatic cancer
     Dosage: 10.000ML (HEPATIC ARTERY PERFUSION)
     Dates: start: 20240816, end: 20240816
  4. DEXTROSE [Concomitant]
     Active Substance: DEXTROSE\DEXTROSE MONOHYDRATE
     Indication: Hepatic cancer
     Dosage: 50.000ML QD (HEPATIC ARTERY PERFUSION)
     Dates: start: 20240816, end: 20240816
  5. EPIRUBICIN [Concomitant]
     Active Substance: EPIRUBICIN
     Dosage: 40 MG

REACTIONS (1)
  - Hepatic function abnormal [Recovering/Resolving]

NARRATIVE: CASE EVENT DATE: 20240820
